FAERS Safety Report 24936801 (Version 1)
Quarter: 2025Q1

REPORT INFORMATION
  Report Type: Spontaneous
  Country: US (occurrence: None)
  Receive Date: 20250205
  Receipt Date: 20250205
  Transmission Date: 20250408
  Serious: Yes (Hospitalization)
  Sender: FDA-CTU
  Company Number: None

PATIENT

DRUGS (1)
  1. BARHEMSYS [Suspect]
     Active Substance: AMISULPRIDE

REACTIONS (2)
  - Infusion related reaction [None]
  - Unevaluable event [None]
